FAERS Safety Report 23435198 (Version 2)
Quarter: 2024Q1

REPORT INFORMATION
  Report Type: Spontaneous
  Country: US (occurrence: US)
  Receive Date: 20240123
  Receipt Date: 20240227
  Transmission Date: 20240409
  Serious: No
  Sender: FDA-Public Use
  Company Number: US-BAUSCHBL-2024BNL000607

PATIENT
  Age: 82 Year
  Sex: Female

DRUGS (6)
  1. PROLENSA [Suspect]
     Active Substance: BROMFENAC SODIUM
     Indication: Postoperative care
     Route: 047
  2. PROLENSA [Suspect]
     Active Substance: BROMFENAC SODIUM
     Indication: Cystoid macular oedema
     Dosage: 1 DROP IN EACH EYE IN THE MORNING AND IN THE EVENING
     Route: 047
  3. PROLENSA [Suspect]
     Active Substance: BROMFENAC SODIUM
     Dosage: 1 DROP INTO THE LEFT EYE ONCE DAILY AND 1 DROP INTO THE RIGHT EYE TWICE DAILY
     Route: 047
     Dates: start: 20230215
  4. PROLENSA [Suspect]
     Active Substance: BROMFENAC SODIUM
     Dosage: STOP ADMINISTERING INTO THE LEFT EYE AND WILL ADMINISTER 1 DROP INTO THE RIGHT EYE ONCE DAILY
     Route: 047
  5. DEVICE [Suspect]
     Active Substance: DEVICE
     Indication: Postoperative care
     Route: 065
  6. DEVICE [Suspect]
     Active Substance: DEVICE
     Indication: Cystoid macular oedema

REACTIONS (10)
  - Periorbital swelling [Recovering/Resolving]
  - Headache [Unknown]
  - Head discomfort [Unknown]
  - Photophobia [Unknown]
  - Dry eye [Unknown]
  - Eye pain [Unknown]
  - Pigmentation disorder [Unknown]
  - Product prescribing error [Unknown]
  - Inappropriate schedule of product administration [Unknown]
  - Product use issue [Unknown]
